FAERS Safety Report 14002980 (Version 3)
Quarter: 2018Q2

REPORT INFORMATION
  Report Type: Report from Study
  Country: CA (occurrence: CA)
  Receive Date: 20170922
  Receipt Date: 20180504
  Transmission Date: 20180711
  Serious: Yes (Other)
  Sender: FDA-Public Use
  Company Number: CA-BRISTOL-MYERS SQUIBB COMPANY-BMS-2017-083508

PATIENT
  Sex: Female

DRUGS (1)
  1. ABATACEPT [Suspect]
     Active Substance: ABATACEPT
     Indication: RHEUMATOID ARTHRITIS
     Dosage: 500 MG, Q4WK
     Route: 042
     Dates: start: 20140506

REACTIONS (7)
  - Balance disorder [Not Recovered/Not Resolved]
  - Cognitive disorder [Unknown]
  - Dementia Alzheimer^s type [Not Recovered/Not Resolved]
  - Pulmonary fibrosis [Unknown]
  - Productive cough [Unknown]
  - Eating disorder [Unknown]
  - Pyrexia [Unknown]
